FAERS Safety Report 20074290 (Version 1)
Quarter: 2021Q4

REPORT INFORMATION
  Report Type: Spontaneous
  Country: US (occurrence: None)
  Receive Date: 20211115
  Receipt Date: 20211115
  Transmission Date: 20220304
  Serious: Yes (Hospitalization)
  Sender: FDA-Public Use
  Company Number: None

PATIENT
  Age: 76 Year
  Sex: Male
  Weight: 69.9 kg

DRUGS (3)
  1. KEYTRUDA [Suspect]
     Active Substance: PEMBROLIZUMAB
     Indication: Renal cancer metastatic
     Dosage: OTHER FREQUENCY : Q3WK;?
     Route: 041
     Dates: start: 20210513
  2. ATORVASTATIN [Concomitant]
     Active Substance: ATORVASTATIN
     Dates: start: 20210101
  3. TAMSULOSIN [Concomitant]
     Active Substance: TAMSULOSIN
     Dates: start: 20210101

REACTIONS (2)
  - Hypothyroidism [None]
  - Adrenal insufficiency [None]

NARRATIVE: CASE EVENT DATE: 20211112
